FAERS Safety Report 9053651 (Version 1)
Quarter: 2013Q1

REPORT INFORMATION
  Report Type: Spontaneous
  Country: US (occurrence: US)
  Receive Date: 20130208
  Receipt Date: 20130208
  Transmission Date: 20140127
  Serious: Yes (Other)
  Sender: FDA-Public Use
  Company Number: PHEH2013US000663

PATIENT
  Sex: Male

DRUGS (6)
  1. DIOVAN [Suspect]
     Indication: HYPERTENSION
     Dosage: 160 MG, DAILY
     Route: 048
     Dates: start: 20120814, end: 20130110
  2. GLUCOPHAGE [Concomitant]
     Dosage: 1 DF, BID
     Route: 048
  3. ZOCOL [Concomitant]
     Dosage: 1 DF, DAILY
     Dates: start: 20101204
  4. METOPROLOL [Concomitant]
     Dosage: 0.5 DF (50 MG EACH), DAILY
     Route: 048
     Dates: start: 20130110
  5. XANAX [Concomitant]
     Dosage: 1 DF, BID
     Route: 048
     Dates: start: 20120509
  6. ASPIRIN [Concomitant]
     Dosage: 325 MG, DAILY
     Route: 048
     Dates: start: 20120502

REACTIONS (2)
  - Blood glucose increased [Recovering/Resolving]
  - Glycosylated haemoglobin increased [Unknown]
